FAERS Safety Report 11383711 (Version 2)
Quarter: 2015Q3

REPORT INFORMATION
  Report Type: Spontaneous
  Country: JP (occurrence: JP)
  Receive Date: 20150814
  Receipt Date: 20150825
  Transmission Date: 20151125
  Serious: Yes (Hospitalization, Other)
  Sender: FDA-Public Use
  Company Number: JP-BAXTER-2015BAX042640

PATIENT
  Age: 68 Year
  Sex: Male

DRUGS (2)
  1. UROMITEXAN 400 MG [Suspect]
     Active Substance: MESNA
     Indication: PROPHYLACTIC CHEMOTHERAPY
     Dosage: 600 MG PER DAY
     Route: 041
     Dates: start: 20150727, end: 20150727
  2. ENDOXAN 1G [Suspect]
     Active Substance: CYCLOPHOSPHAMIDE
     Indication: GLOMERULONEPHRITIS RAPIDLY PROGRESSIVE
     Route: 041
     Dates: start: 20150727, end: 20150727

REACTIONS (3)
  - Lip swelling [Recovered/Resolved]
  - Respiratory disorder [Unknown]
  - Rash generalised [Recovering/Resolving]

NARRATIVE: CASE EVENT DATE: 20150727
